FAERS Safety Report 7543660-9 (Version None)
Quarter: 2011Q2

REPORT INFORMATION
  Report Type: 
  Country: None (occurrence: None)
  Receive Date: 20110613
  Receipt Date: 20030704
  Transmission Date: 20111010
  Serious: Yes (Death)
  Sender: FDA-Public Use
  Company Number: PHNR2003AU00829

PATIENT
  Sex: Female

DRUGS (3)
  1. PAROXETINE HYDROCHLORIDE [Concomitant]
     Dosage: 50 MG, UNK
  2. CLOZARIL [Suspect]
     Indication: SCHIZOPHRENIA
     Dosage: 3 X 100 MG BID
     Route: 048
     Dates: start: 19960315
  3. VALPROATE SODIUM [Concomitant]
     Dosage: 2 X 200 MG BID

REACTIONS (3)
  - INFLUENZA LIKE ILLNESS [None]
  - RESPIRATORY TRACT INFECTION [None]
  - PNEUMONIA [None]
